FAERS Safety Report 19455741 (Version 4)
Quarter: 2021Q3

REPORT INFORMATION
  Report Type: Spontaneous
  Country: GB (occurrence: GB)
  Receive Date: 20210624
  Receipt Date: 20210930
  Transmission Date: 20211014
  Serious: Yes (Hospitalization, Other)
  Sender: FDA-Public Use
  Company Number: GB-JNJFOC-20191215586

PATIENT
  Age: 7 Year
  Sex: Male

DRUGS (27)
  1. TRAMADOL HYDROCHLORIDE. [Suspect]
     Active Substance: TRAMADOL HYDROCHLORIDE
     Dosage: UNK
     Route: 065
  2. TRAMADOL HYDROCHLORIDE. [Suspect]
     Active Substance: TRAMADOL HYDROCHLORIDE
     Dosage: UNK UNK, 1/DAY
     Route: 065
  3. DUTASTERIDE. [Suspect]
     Active Substance: DUTASTERIDE
     Indication: PRODUCT USED FOR UNKNOWN INDICATION
     Dosage: 500 MILLIGRAM, 1/DAY
     Route: 065
  4. BISOPROLOL FUMARATE. [Suspect]
     Active Substance: BISOPROLOL FUMARATE
     Dosage: 2.5 MILLIGRAM, 1/DAY
     Route: 065
  5. ALFUZOSIN HYDROCHLORIDE. [Suspect]
     Active Substance: ALFUZOSIN HYDROCHLORIDE
     Dosage: 10 MILLIGRAM, 1/DAY
     Route: 065
  6. DAPTOMYCIN. [Suspect]
     Active Substance: DAPTOMYCIN
     Indication: DEVICE RELATED INFECTION
  7. TRAMADOL HYDROCHLORIDE. [Suspect]
     Active Substance: TRAMADOL HYDROCHLORIDE
     Dosage: UNK
     Route: 065
  8. DUTASTERIDE. [Suspect]
     Active Substance: DUTASTERIDE
     Indication: PRODUCT USED FOR UNKNOWN INDICATION
     Dosage: 500 MICROGRAM, 1/DAY
     Route: 065
  9. LANSOPRAZOLE. [Suspect]
     Active Substance: LANSOPRAZOLE
     Dosage: 15 MILLIGRAM, 1/DAY
     Route: 065
  10. LANSOPRAZOLE. [Suspect]
     Active Substance: LANSOPRAZOLE
     Dosage: 2.5 MILLIGRAM, 1/DAY
     Route: 065
  11. VANCOMYCIN [Suspect]
     Active Substance: VANCOMYCIN
     Indication: BACTERAEMIA
     Dosage: UNK
     Route: 042
  12. TRAMADOL HYDROCHLORIDE. [Suspect]
     Active Substance: TRAMADOL HYDROCHLORIDE
     Indication: PRODUCT USED FOR UNKNOWN INDICATION
     Dosage: 50 MILLIGRAM
     Route: 065
  13. TRAMADOL HYDROCHLORIDE. [Suspect]
     Active Substance: TRAMADOL HYDROCHLORIDE
     Dosage: 50 MILLIGRAM, 1/DAY
     Route: 065
  14. DUTASTERIDE. [Suspect]
     Active Substance: DUTASTERIDE
     Dosage: 500 GRAM, 1/DAY
     Route: 065
  15. BISOPROLOL FUMARATE. [Suspect]
     Active Substance: BISOPROLOL FUMARATE
     Indication: PRODUCT USED FOR UNKNOWN INDICATION
     Dosage: 2.5 MILLIGRAM, 1/DAY
     Route: 065
  16. BISOPROLOL FUMARATE. [Suspect]
     Active Substance: BISOPROLOL FUMARATE
     Dosage: 2.5 MILLIGRAM, 1/DAY
     Route: 065
  17. VANCOMYCIN [Suspect]
     Active Substance: VANCOMYCIN
     Indication: DEVICE RELATED INFECTION
     Dosage: UNK
     Route: 065
  18. TRAMADOL HYDROCHLORIDE. [Suspect]
     Active Substance: TRAMADOL HYDROCHLORIDE
     Dosage: 100 MILLIGRAM, 1/DAY
     Route: 065
  19. TRAMADOL HYDROCHLORIDE. [Suspect]
     Active Substance: TRAMADOL HYDROCHLORIDE
     Dosage: UNK, EVERY 2 DAYS
     Route: 065
  20. LANSOPRAZOLE. [Suspect]
     Active Substance: LANSOPRAZOLE
     Indication: PRODUCT USED FOR UNKNOWN INDICATION
     Dosage: 15 MILLIGRAM, 1/DAY
     Route: 065
  21. DAPTOMYCIN. [Suspect]
     Active Substance: DAPTOMYCIN
     Indication: BACTERAEMIA
     Dosage: UNK
     Route: 042
  22. ALFUZOSIN HYDROCHLORIDE. [Suspect]
     Active Substance: ALFUZOSIN HYDROCHLORIDE
     Indication: PRODUCT USED FOR UNKNOWN INDICATION
     Dosage: 10 MILLIGRAM, 1/DAY
     Route: 065
  23. DUTASTERIDE. [Suspect]
     Active Substance: DUTASTERIDE
     Dosage: UNK
     Route: 065
  24. LANSOPRAZOLE. [Suspect]
     Active Substance: LANSOPRAZOLE
     Dosage: 2.5 MILLIGRAM
     Route: 065
  25. BISOPROLOL [Suspect]
     Active Substance: BISOPROLOL
     Indication: PRODUCT USED FOR UNKNOWN INDICATION
     Dosage: 2.5 MILLIGRAM, 1/DAY
     Route: 065
  26. TRAMADOL HYDROCHLORIDE. [Suspect]
     Active Substance: TRAMADOL HYDROCHLORIDE
     Dosage: UNK
     Route: 065
  27. LANSOPRAZOLE. [Suspect]
     Active Substance: LANSOPRAZOLE
     Dosage: UNK
     Route: 065

REACTIONS (13)
  - Malaise [Unknown]
  - Drug ineffective for unapproved indication [Unknown]
  - Therapy non-responder [Unknown]
  - Off label use [Unknown]
  - Product dispensing error [Unknown]
  - Wrong product administered [Unknown]
  - Lower respiratory tract infection [Unknown]
  - Product storage error [Unknown]
  - Drug dispensed to wrong patient [Unknown]
  - Product administration error [Unknown]
  - Therapeutic response delayed [Unknown]
  - Wrong patient received product [Unknown]
  - Expired product administered [Unknown]
